FAERS Safety Report 4305220-2 (Version None)
Quarter: 2004Q1

REPORT INFORMATION
  Report Type: 
  Country: None (occurrence: None)
  Receive Date: 20040226
  Receipt Date: 20030529
  Transmission Date: 20041129
  Serious: Yes (Hospitalization, Disabling)
  Sender: FDA-Public Use
  Company Number: WAES 0305USA02909

PATIENT
  Age: 33 Year
  Sex: Male
  Weight: 89 kg

DRUGS (11)
  1. FOLIC ACID [Concomitant]
     Indication: VITAMIN SUPPLEMENTATION
  2. ARAVA [Concomitant]
     Indication: ARTHRITIS
  3. METHOTREXATE [Concomitant]
     Indication: ARTHRITIS
     Dates: start: 20010303, end: 20020517
  4. AREDIA [Concomitant]
  5. PREDNISONE [Concomitant]
  6. INDERAL [Concomitant]
     Indication: TREMOR
     Dates: start: 19880101, end: 20020501
  7. INDERAL [Concomitant]
     Dates: start: 20021101
  8. INDERAL LA [Concomitant]
  9. VIOXX [Suspect]
     Indication: PSORIATIC ARTHROPATHY
     Route: 048
     Dates: start: 20010101, end: 20020501
  10. VIOXX [Suspect]
     Route: 048
     Dates: start: 19990101
  11. VIOXX [Suspect]
     Route: 048
     Dates: start: 20020501, end: 20020501

REACTIONS (26)
  - ABDOMINAL PAIN UPPER [None]
  - ANXIETY [None]
  - ARTHRITIS [None]
  - ASTHENIA [None]
  - CARDIAC FAILURE CONGESTIVE [None]
  - DIARRHOEA [None]
  - DYSPNOEA PAROXYSMAL NOCTURNAL [None]
  - HYPERTENSION [None]
  - INFECTION [None]
  - INJURY [None]
  - INSOMNIA [None]
  - MELAENA [None]
  - MYOCARDIAL INFARCTION [None]
  - NIGHTMARE [None]
  - ORTHOPNOEA [None]
  - PALPITATIONS [None]
  - PANIC ATTACK [None]
  - PHLEBITIS SUPERFICIAL [None]
  - PULMONARY EMBOLISM [None]
  - PULMONARY HYPERTENSION [None]
  - STRESS SYMPTOMS [None]
  - TACHYCARDIA [None]
  - THROMBOSIS [None]
  - TRICUSPID VALVE INCOMPETENCE [None]
  - UPPER RESPIRATORY TRACT INFECTION [None]
  - WEIGHT INCREASED [None]
